FAERS Safety Report 9231875 (Version 2)
Quarter: 2013Q3

REPORT INFORMATION
  Report Type: Spontaneous
  Country: FR (occurrence: FR)
  Receive Date: 20130415
  Receipt Date: 20130809
  Transmission Date: 20140515
  Serious: Yes (Other)
  Sender: FDA-Public Use
  Company Number: CHPA2013FR004318

PATIENT
  Age: 28 Year
  Sex: Male
  Weight: 51 kg

DRUGS (6)
  1. SCOPODERM TTS [Suspect]
     Indication: SALIVARY HYPERSECRETION
     Dosage: 1 MG, Q72H
     Route: 062
  2. SCOPODERM TTS [Suspect]
     Dosage: 2 MG, Q72H
     Route: 062
     Dates: start: 201303
  3. SCOPODERM TTS [Suspect]
     Dosage: 1 MG, Q72H
     Route: 062
     Dates: start: 20120827, end: 201303
  4. TEMESTA [Concomitant]
     Dosage: 2 DF, QHS
  5. EFFEXOR [Concomitant]
     Dosage: 1 DF, QD
  6. TRAMADOL [Concomitant]
     Indication: HEADACHE
     Dosage: 1-2 DF, PRN HEADACHES

REACTIONS (4)
  - Drug ineffective for unapproved indication [Unknown]
  - Therapeutic response unexpected [Unknown]
  - Inappropriate schedule of drug administration [Unknown]
  - Incorrect dose administered [Unknown]
